FAERS Safety Report 8875705 (Version 2)
Quarter: 2012Q4

REPORT INFORMATION
  Report Type: 
  Country: DE (occurrence: DE)
  Receive Date: 20121030
  Receipt Date: 20121105
  Transmission Date: 20130627
  Serious: No
  Sender: FDA-Public Use
  Company Number: PHHO2012DE015384

PATIENT
  Sex: Female
  Weight: 84 kg

DRUGS (2)
  1. AFINITOR [Suspect]
     Indication: TUBEROUS SCLEROSIS
     Dosage: UNK
     Route: 048
     Dates: start: 20100326, end: 20120908
  2. AFINITOR [Suspect]
     Dosage: UNK
     Route: 048
     Dates: start: 20120921

REACTIONS (1)
  - No adverse event [Unknown]
